FAERS Safety Report 21859025 (Version 1)
Quarter: 2023Q1

REPORT INFORMATION
  Report Type: Report from Study
  Country: MX (occurrence: MX)
  Receive Date: 20230113
  Receipt Date: 20230113
  Transmission Date: 20230418
  Serious: Yes (Other)
  Sender: FDA-Public Use
  Company Number: MX-002147023-NVSC2023MX007383

PATIENT
  Sex: Male
  Weight: 91 kg

DRUGS (4)
  1. EXFORGE [Suspect]
     Active Substance: AMLODIPINE BESYLATE\VALSARTAN
     Indication: Hypertension
     Dosage: 1 DOSAGE FORM, QD (START DATE:2018 OR BEFORE, STOP DATE: APPROXIMATELY 1 YEAR AGO, 5 MG: AMLODIPINE
     Route: 048
  2. EXFORGE [Suspect]
     Active Substance: AMLODIPINE BESYLATE\VALSARTAN
     Dosage: 1 DOSAGE REGIMEN, QD (5 MG: AMLODIPINE (AS AMLODIPINE BESYLATE) AND 320 MG: VALSARTAN)
     Route: 048
     Dates: start: 2021
  3. TENORETIC [Suspect]
     Active Substance: ATENOLOL\CHLORTHALIDONE
     Indication: Blood pressure increased
     Dosage: 50 MG, QD
     Route: 048
     Dates: start: 2016, end: 2021
  4. ASPIRIN [Concomitant]
     Active Substance: ASPIRIN
     Indication: Anticoagulant therapy
     Dosage: 1 DOSAGE FORM, QD
     Route: 048
     Dates: start: 2016

REACTIONS (4)
  - Weight increased [Not Recovered/Not Resolved]
  - Blood cholesterol decreased [Unknown]
  - Blood uric acid increased [Recovering/Resolving]
  - Blood pressure increased [Recovering/Resolving]

NARRATIVE: CASE EVENT DATE: 20210101
